FAERS Safety Report 23280925 (Version 2)
Quarter: 2023Q4

REPORT INFORMATION
  Report Type: Spontaneous
  Country: AT (occurrence: AT)
  Receive Date: 20231211
  Receipt Date: 20231212
  Transmission Date: 20240109
  Serious: Yes (Other)
  Sender: FDA-Public Use
  Company Number: AT-ABBVIE-5506652

PATIENT
  Sex: Female

DRUGS (7)
  1. ABATACEPT [Suspect]
     Active Substance: ABATACEPT
     Indication: Product used for unknown indication
     Dates: start: 201203
  2. BARICITINIB [Suspect]
     Active Substance: BARICITINIB
     Indication: Product used for unknown indication
     Dates: start: 201806
  3. ETANERCEPT [Suspect]
     Active Substance: ETANERCEPT
     Indication: Product used for unknown indication
     Dates: start: 201401, end: 201701
  4. HUMIRA [Suspect]
     Active Substance: ADALIMUMAB
     Indication: Rheumatoid arthritis
     Route: 058
     Dates: start: 201108, end: 201202
  5. HUMIRA [Suspect]
     Active Substance: ADALIMUMAB
     Dates: start: 201108, end: 201202
  6. CORTISONE ACETATE [Concomitant]
     Active Substance: CORTISONE ACETATE
     Indication: Product used for unknown indication
     Dates: start: 201805, end: 201809
  7. TOCILIZUMAB [Concomitant]
     Active Substance: TOCILIZUMAB
     Indication: Product used for unknown indication
     Dates: start: 201703

REACTIONS (12)
  - Therapeutic product effect decreased [Unknown]
  - Spinal pain [Unknown]
  - Osteochondrosis [Unknown]
  - Rheumatoid arthritis [Unknown]
  - Spinal instability [Unknown]
  - Gingivitis [Unknown]
  - Weight decreased [Unknown]
  - Cubital tunnel syndrome [Unknown]
  - Tenosynovitis [Unknown]
  - Joint stiffness [Recovering/Resolving]
  - Synovial disorder [Recovering/Resolving]
  - Magnetic resonance imaging abnormal [Unknown]

NARRATIVE: CASE EVENT DATE: 20140101
